FAERS Safety Report 4707032-4 (Version None)
Quarter: 2005Q3

REPORT INFORMATION
  Report Type: 
  Country: None (occurrence: None)
  Receive Date: 20050701
  Receipt Date: 20050701
  Transmission Date: 20060218
  Serious: Yes (Life-Threatening, Hospitalization)
  Sender: FDA-Public Use
  Company Number: None

PATIENT
  Sex: Female

DRUGS (19)
  1. IMMUNE GLOBULIN INTRAVENOUS (HUMAN) [Suspect]
     Indication: CHRONIC INFLAMMATORY DEMYELINATING POLYRADICULONEUROPATHY
     Dosage: 500 MG/KG DAILY X 3 INTRAVENOU
     Route: 042
     Dates: start: 20050613, end: 20050615
  2. LASIX [Concomitant]
  3. PAXIL [Concomitant]
  4. PREVACID [Concomitant]
  5. GLUCOSAMINE [Concomitant]
  6. DARVOCET-N 100 [Concomitant]
  7. THEOPHYLLINE-SR [Concomitant]
  8. THEOLAIR [Concomitant]
  9. ADVAIR DISKUS 100/50 [Concomitant]
  10. PROVENTIL [Concomitant]
  11. CALCIUM GLUCONATE [Concomitant]
  12. IRON SULFATETHIAMIN COMPOUND TAB [Concomitant]
  13. COLACE [Concomitant]
  14. PRAVACHOL [Concomitant]
  15. OCUVITE [Concomitant]
  16. VERAPAMIL [Concomitant]
  17. ZESTRIL [Concomitant]
  18. ASPIRIN [Concomitant]
  19. B12 [Concomitant]

REACTIONS (2)
  - ABDOMINAL DISTENSION [None]
  - DIALYSIS [None]
